FAERS Safety Report 7134700-X (Version None)
Quarter: 2010Q4

REPORT INFORMATION
  Report Type: 
  Country: None (occurrence: None)
  Receive Date: 20101203
  Receipt Date: 20101130
  Transmission Date: 20110411
  Serious: Yes (Hospitalization)
  Sender: FDA-Public Use
  Company Number: IT-ROCHE-733878

PATIENT
  Sex: Female
  Weight: 100 kg

DRUGS (2)
  1. TOCILIZUMAB [Suspect]
     Indication: RHEUMATOID ARTHRITIS
     Dosage: FORM VIAL, PERMANENTLY DISCONTINUED.
     Route: 042
     Dates: start: 20100528, end: 20101013
  2. LEVOTHYROXINE SODIUM [Concomitant]
     Dosage: DRUG REPORTED AS LEVOTIROXINE
     Dates: start: 19990101

REACTIONS (8)
  - BLOOD CREATINE PHOSPHOKINASE MB INCREASED [None]
  - BLOOD PRESSURE SYSTOLIC INCREASED [None]
  - BODY TEMPERATURE DECREASED [None]
  - BUNDLE BRANCH BLOCK RIGHT [None]
  - CHEST PAIN [None]
  - DISCOMFORT [None]
  - ERYTHEMA [None]
  - FEELING HOT [None]
